FAERS Safety Report 8075796-0 (Version None)
Quarter: 2012Q1

REPORT INFORMATION
  Report Type: 
  Country: None (occurrence: None)
  Receive Date: 20120127
  Receipt Date: 20120116
  Transmission Date: 20120608
  Serious: Yes (Hospitalization)
  Sender: FDA-Public Use
  Company Number: DE-ELI_LILLY_AND_COMPANY-DE201105004080

PATIENT
  Sex: Female

DRUGS (5)
  1. TEBONIN [Concomitant]
     Dosage: UNK, UNKNOWN
     Route: 065
  2. Q10 [Concomitant]
     Dosage: UNK, UNKNOWN
     Route: 065
  3. FORTEO [Suspect]
     Dosage: UNK UNK, UNKNOWN
     Route: 058
  4. ATORVASTATIN CALCIUM [Concomitant]
     Dosage: UNK, UNKNOWN
     Route: 065
  5. CALCIUM [Concomitant]
     Dosage: UNK, UNKNOWN
     Route: 065

REACTIONS (1)
  - MENISCUS LESION [None]
